FAERS Safety Report 18413427 (Version 1)
Quarter: 2020Q4

REPORT INFORMATION
  Report Type: Spontaneous
  Country: SI (occurrence: SI)
  Receive Date: 20201022
  Receipt Date: 20201022
  Transmission Date: 20210114
  Serious: Yes (Death, Other)
  Sender: FDA-Public Use
  Company Number: SI-ROCHE-2699622

PATIENT
  Age: 66 Year
  Sex: Male

DRUGS (1)
  1. ATEZOLIZUMAB. [Suspect]
     Active Substance: ATEZOLIZUMAB
     Indication: TRANSITIONAL CELL CARCINOMA
     Route: 065
     Dates: start: 20180803

REACTIONS (4)
  - Deep vein thrombosis [Unknown]
  - Immune thrombocytopenia [Unknown]
  - Death [Fatal]
  - Epilepsy [Unknown]

NARRATIVE: CASE EVENT DATE: 20180826
